FAERS Safety Report 9055298 (Version 1)
Quarter: 2013Q1

REPORT INFORMATION
  Report Type: Spontaneous
  Country: DE (occurrence: DE)
  Receive Date: 20130209
  Receipt Date: 20130209
  Transmission Date: 20140127
  Serious: Yes (Hospitalization)
  Sender: FDA-Public Use
  Company Number: DE-TEVA-383326GER

PATIENT
  Age: 35 Year
  Sex: Female
  Weight: 70 kg

DRUGS (1)
  1. TOPIRAMATE [Suspect]
     Indication: MIGRAINE PROPHYLAXIS
     Dosage: 25 MG
     Route: 048
     Dates: start: 20120130, end: 20121110

REACTIONS (4)
  - Myopia [Recovered/Resolved]
  - Narrow anterior chamber angle [Recovered/Resolved]
  - Ocular hypertension [Recovered/Resolved]
  - Choroidal effusion [Recovered/Resolved]
